FAERS Safety Report 17883823 (Version 1)
Quarter: 2020Q2

REPORT INFORMATION
  Report Type: Spontaneous
  Country: BR (occurrence: BR)
  Receive Date: 20200611
  Receipt Date: 20200611
  Transmission Date: 20200714
  Serious: Yes (Other)
  Sender: FDA-Public Use
  Company Number: BR-009507513-2006BRA003521

PATIENT
  Age: 21 Year
  Sex: Female
  Weight: 70 kg

DRUGS (2)
  1. NASONEX [Suspect]
     Active Substance: MOMETASONE FUROATE
     Indication: RHINITIS
     Dosage: 2 SPRAY IN EACH NOSTRIL TWICE DAILY (MORNING AND NIGHT)
     Route: 045
     Dates: start: 201206
  2. NASONEX [Suspect]
     Active Substance: MOMETASONE FUROATE
     Indication: LABYRINTHITIS

REACTIONS (3)
  - Product prescribing issue [Unknown]
  - Seizure [Unknown]
  - Product use in unapproved indication [Unknown]

NARRATIVE: CASE EVENT DATE: 201206
